FAERS Safety Report 24238354 (Version 1)
Quarter: 2024Q3

REPORT INFORMATION
  Report Type: Spontaneous
  Country: IT (occurrence: IT)
  Receive Date: 20240822
  Receipt Date: 20240822
  Transmission Date: 20241017
  Serious: Yes (Other)
  Sender: HIKMA
  Company Number: IT-HIKMA PHARMACEUTICALS-IT-H14001-24-07850

PATIENT
  Age: 74 Year
  Sex: Female

DRUGS (3)
  1. CISPLATIN [Suspect]
     Active Substance: CISPLATIN
     Indication: Cholangiocarcinoma
     Dosage: 32 MILLIGRAM
     Route: 042
     Dates: start: 20240530, end: 20240530
  2. GEMCITABINE [Suspect]
     Active Substance: GEMCITABINE
     Indication: Cholangiocarcinoma
     Dosage: 1304 MILLIGRAM
     Route: 042
     Dates: start: 20240530, end: 20240530
  3. IMFINZI [Suspect]
     Active Substance: DURVALUMAB
     Indication: Cholangiocarcinoma
     Dosage: 1500 MILLIGRAM
     Route: 042
     Dates: start: 20240530, end: 20240530

REACTIONS (2)
  - Decreased appetite [Recovered/Resolved]
  - Neutropenia [Recovering/Resolving]

NARRATIVE: CASE EVENT DATE: 20240603
